FAERS Safety Report 18316747 (Version 1)
Quarter: 2020Q3

REPORT INFORMATION
  Report Type: Spontaneous
  Country: US (occurrence: US)
  Receive Date: 20200928
  Receipt Date: 20200928
  Transmission Date: 20201103
  Serious: Yes (Hospitalization)
  Sender: FDA-Public Use
  Company Number: US-DECIPHERA PHARMACEUTICALS LLC-2020-US-000431

PATIENT
  Sex: Female

DRUGS (1)
  1. QINLOCK [Suspect]
     Active Substance: RIPRETINIB
     Indication: GASTROINTESTINAL STROMAL TUMOUR
     Dosage: 150 MILLIGRAM, QD
     Route: 048
     Dates: start: 20200820

REACTIONS (7)
  - Hospitalisation [Unknown]
  - Decreased appetite [Unknown]
  - Acne [Unknown]
  - Diarrhoea [Unknown]
  - Nausea [Unknown]
  - Bone pain [Unknown]
  - Fatigue [Unknown]
